FAERS Safety Report 5442883-2 (Version None)
Quarter: 2007Q3

REPORT INFORMATION
  Report Type: 
  Country: None (occurrence: None)
  Receive Date: 20070831
  Receipt Date: 20070831
  Transmission Date: 20080115
  Serious: Yes (Hospitalization)
  Sender: FDA-Public Use
  Company Number: None

PATIENT
  Age: 61 Year
  Sex: Male
  Weight: 61.2356 kg

DRUGS (4)
  1. TARCEVA [Suspect]
     Indication: SQUAMOUS CELL CARCINOMA
     Dosage: 150MG PO QD
     Route: 048
     Dates: start: 20060719, end: 20060822
  2. TARCEVA [Suspect]
  3. INTRA ARTERIAL CISPLATIN [Concomitant]
  4. RADIATION THERAPY [Concomitant]

REACTIONS (47)
  - ASPIRATION [None]
  - ASTHENIA [None]
  - BLOOD ALBUMIN DECREASED [None]
  - BLOOD POTASSIUM DECREASED [None]
  - BREAKTHROUGH PAIN [None]
  - BREATH ODOUR [None]
  - BRONCHOPLEURAL FISTULA [None]
  - CEREBRAL ATROPHY [None]
  - CONSTIPATION [None]
  - COUGH [None]
  - DEHYDRATION [None]
  - DIARRHOEA [None]
  - DIZZINESS [None]
  - DYSPHAGIA [None]
  - DYSPNOEA [None]
  - DYSPNOEA EXERTIONAL [None]
  - EMPYEMA [None]
  - FATIGUE [None]
  - FEEDING TUBE COMPLICATION [None]
  - HAEMOGLOBIN DECREASED [None]
  - HEADACHE [None]
  - HYPOTENSION [None]
  - INCREASED UPPER AIRWAY SECRETION [None]
  - INFECTION [None]
  - LUNG ABSCESS [None]
  - LUNG INFILTRATION [None]
  - MALNUTRITION [None]
  - MUCOSAL INFLAMMATION [None]
  - NAUSEA [None]
  - ORAL INTAKE REDUCED [None]
  - PAIN [None]
  - PALLOR [None]
  - PHARYNGEAL DISORDER [None]
  - PLATELET COUNT ABNORMAL [None]
  - PLEURAL EFFUSION [None]
  - PNEUMONIA [None]
  - PULMONARY FUNCTION TEST ABNORMAL [None]
  - RASH [None]
  - RASH ERYTHEMATOUS [None]
  - SLEEP DISORDER [None]
  - SOMNOLENCE [None]
  - THROAT IRRITATION [None]
  - TONGUE DISCOLOURATION [None]
  - TREATMENT NONCOMPLIANCE [None]
  - VOMITING [None]
  - WEIGHT DECREASED [None]
  - WHITE BLOOD CELL COUNT INCREASED [None]
